FAERS Safety Report 6837008-2 (Version None)
Quarter: 2010Q3

REPORT INFORMATION
  Report Type: 
  Country: None (occurrence: None)
  Receive Date: 20100713
  Receipt Date: 20070503
  Transmission Date: 20110219
  Serious: No
  Sender: FDA-Public Use
  Company Number: US-PFIZER INC-2007036423

PATIENT
  Sex: Female
  Weight: 55.909 kg

DRUGS (3)
  1. CHANTIX [Suspect]
     Indication: SMOKING CESSATION THERAPY
     Route: 048
     Dates: start: 20070428
  2. TEMAZE [Concomitant]
  3. ESTRADIOL [Concomitant]

REACTIONS (1)
  - CONSTIPATION [None]
